FAERS Safety Report 17514237 (Version 1)
Quarter: 2020Q1

REPORT INFORMATION
  Report Type: Spontaneous
  Country: FR (occurrence: FR)
  Receive Date: 20200306
  Receipt Date: 20200306
  Transmission Date: 20200409
  Serious: Yes (Life-Threatening)
  Sender: FDA-Public Use
  Company Number: FR-AUROBINDO-AUR-APL-2020-010573

PATIENT
  Age: 67 Year
  Sex: Female

DRUGS (2)
  1. AMOXICILLIN FILM-COATED DISPERSIBLE TABLET [Suspect]
     Active Substance: AMOXICILLIN
     Indication: DENTAL DISCOMFORT
     Dosage: 2 DOSAGE FORM, ONCE A DAY
     Route: 048
     Dates: start: 20200113, end: 20200113
  2. DOLIPRANE [Concomitant]
     Active Substance: ACETAMINOPHEN
     Indication: DENTAL DISCOMFORT
     Dosage: 1 DOSAGE FORM, ONCE A DAY (1 DF, QD(1 TABLET OF 1G,QD IN THE MORNING))
     Route: 065

REACTIONS (6)
  - Pruritus [Recovering/Resolving]
  - Oral discomfort [Recovering/Resolving]
  - Speech disorder [Recovering/Resolving]
  - Eye irritation [Recovering/Resolving]
  - Swollen tongue [Recovering/Resolving]
  - Burning sensation [Recovering/Resolving]

NARRATIVE: CASE EVENT DATE: 20200113
